FAERS Safety Report 4785885-1 (Version None)
Quarter: 2005Q4

REPORT INFORMATION
  Report Type: 
  Country: None (occurrence: None)
  Receive Date: 20051003
  Receipt Date: 20050921
  Transmission Date: 20060501
  Serious: Yes (Hospitalization)
  Sender: FDA-Public Use
  Company Number: PHFR2005GB03209

PATIENT
  Age: 82 Year
  Sex: Female

DRUGS (10)
  1. DICLOFENAC [Suspect]
     Indication: ARTHRITIS
     Dosage: 50 MG, BID
     Route: 048
     Dates: start: 20050520, end: 20050617
  2. COVERSYL /BEL/ [Suspect]
     Dosage: 4 MG, QD
     Route: 048
     Dates: start: 20050101, end: 20050617
  3. DOXAZOSIN [Concomitant]
     Route: 065
  4. AMLODIPINE [Concomitant]
     Route: 065
  5. BENDROFLUAZIDE [Concomitant]
     Route: 065
  6. CALCICHEW-D3 [Concomitant]
     Route: 065
  7. ALBUTEROL SULFATE HFA [Concomitant]
     Route: 065
  8. WARFARIN SODIUM [Concomitant]
     Route: 065
  9. PANTOPRAZOLE [Concomitant]
     Route: 065
  10. PREDNISOLONE [Concomitant]
     Route: 065

REACTIONS (8)
  - BLOOD CREATININE INCREASED [None]
  - BLOOD UREA INCREASED [None]
  - C-REACTIVE PROTEIN INCREASED [None]
  - HYPERKALAEMIA [None]
  - MALAISE [None]
  - NAUSEA [None]
  - RENAL FAILURE [None]
  - URINARY TRACT INFECTION [None]
